FAERS Safety Report 8915696 (Version 3)
Quarter: 2013Q2

REPORT INFORMATION
  Report Type: Report from Study
  Country: US (occurrence: US)
  Receive Date: 20121119
  Receipt Date: 20130416
  Transmission Date: 20140414
  Serious: Yes (Hospitalization, Other)
  Sender: FDA-Public Use
  Company Number: GB-ASTRAZENECA-2012SE86139

PATIENT
  Age: 25869 Day
  Sex: Male
  Weight: 79.4 kg

DRUGS (5)
  1. NEXIUM [Suspect]
     Indication: PROPHYLAXIS
     Route: 048
     Dates: start: 20070901
  2. CELOCOXIB, IBUPROFEN, NAPROXEN CODE NOT BROKEN [Suspect]
     Indication: OSTEOARTHRITIS
     Dosage: TID
     Route: 048
     Dates: start: 20070901
  3. CELOCOXIB, IBUPROFEN, NAPROXEN CODE NOT BROKEN [Suspect]
     Indication: RHEUMATOID ARTHRITIS
     Dosage: TID
     Route: 048
     Dates: start: 20070901
  4. OMEGA 3 [Concomitant]
     Dates: start: 2004
  5. ASA [Concomitant]
     Dates: start: 20070115

REACTIONS (2)
  - Angina unstable [Recovered/Resolved]
  - Coronary artery disease [Recovered/Resolved]
